FAERS Safety Report 20995577 (Version 1)
Quarter: 2022Q2

REPORT INFORMATION
  Report Type: Report from Study
  Country: CH (occurrence: CH)
  Receive Date: 20220623
  Receipt Date: 20220623
  Transmission Date: 20220721
  Serious: Yes (Hospitalization)
  Sender: FDA-Public Use
  Company Number: CH-ABBVIE-22K-151-4441142-00

PATIENT
  Sex: Female

DRUGS (2)
  1. CARBIDOPA\LEVODOPA [Suspect]
     Active Substance: CARBIDOPA\LEVODOPA
     Indication: Parkinson^s disease
     Dosage: MD: 5.5 ML, CRD: 2.3 ML/H, CRN: 0 ML/H, ED: 1.0 ML, 16H THERPAY
     Route: 050
     Dates: start: 20211207
  2. CARBIDOPA\LEVODOPA [Suspect]
     Active Substance: CARBIDOPA\LEVODOPA

REACTIONS (8)
  - Behaviour disorder [Not Recovered/Not Resolved]
  - Dementia [Unknown]
  - Anxiety [Not Recovered/Not Resolved]
  - Aggression [Not Recovered/Not Resolved]
  - Logorrhoea [Not Recovered/Not Resolved]
  - Suspiciousness [Not Recovered/Not Resolved]
  - Hallucination [Not Recovered/Not Resolved]
  - Unevaluable event [Not Recovered/Not Resolved]
